FAERS Safety Report 4310648-0 (Version None)
Quarter: 2004Q1

REPORT INFORMATION
  Report Type: 
  Country: None (occurrence: None)
  Receive Date: 20040301
  Receipt Date: 20031217
  Transmission Date: 20041129
  Serious: No
  Sender: FDA-Public Use
  Company Number: WAES 0312USA02039

PATIENT
  Age: 69 Year
  Sex: Female

DRUGS (4)
  1. ZETIA [Suspect]
     Indication: HYPERCHOLESTEROLAEMIA
     Dosage: 10 MG/PO
     Route: 048
  2. CALTRATE [Concomitant]
  3. LEVOXYL [Concomitant]
  4. ZANTAC [Concomitant]

REACTIONS (1)
  - DRUG INEFFECTIVE [None]
